FAERS Safety Report 10675378 (Version 1)
Quarter: 2014Q4

REPORT INFORMATION
  Report Type: Spontaneous
  Country: IT (occurrence: IT)
  Receive Date: 20141224
  Receipt Date: 20141224
  Transmission Date: 20150529
  Serious: Yes (Other)
  Sender: FDA-Public Use
  Company Number: IT-SA-2014SA174686

PATIENT
  Age: 35 Year
  Sex: Female

DRUGS (5)
  1. LASIX [Concomitant]
     Active Substance: FUROSEMIDE
     Route: 048
  2. NOVORAPID [Suspect]
     Active Substance: INSULIN ASPART
     Indication: DIABETES MELLITUS
     Dosage: DOSE: 20 IU (LESS THAN 100) DAILY, DAILY DOSE OF NOVORAPID: 10 + 10 IU
     Route: 058
     Dates: start: 20140101, end: 20141108
  3. DELTACORTENE [Concomitant]
     Active Substance: PREDNISONE
     Route: 048
  4. LANTUS [Suspect]
     Active Substance: INSULIN GLARGINE
     Indication: DIABETES MELLITUS
     Dosage: DOSE: 13 IU (LESS THAN 100) DAILY
     Route: 058
     Dates: start: 20140101, end: 20141108
  5. BONVIVA [Concomitant]
     Active Substance: IBANDRONATE SODIUM
     Route: 048

REACTIONS (2)
  - Hypokalaemia [Recovering/Resolving]
  - Hypoglycaemia [Recovering/Resolving]

NARRATIVE: CASE EVENT DATE: 20141108
